FAERS Safety Report 5632549-8 (Version None)
Quarter: 2008Q1

REPORT INFORMATION
  Report Type: 
  Country: None (occurrence: None)
  Receive Date: 20080220
  Receipt Date: 20080215
  Transmission Date: 20080703
  Serious: Yes (Life-Threatening, Hospitalization, Other)
  Sender: FDA-Public Use
  Company Number: BE-PFIZER INC-2008002055

PATIENT
  Sex: Female
  Weight: 73 kg

DRUGS (10)
  1. CELEBREX [Suspect]
     Indication: BACK PAIN
  2. CELEBREX [Suspect]
     Indication: INTERVERTEBRAL DISC PROTRUSION
  3. SECTRAL [Concomitant]
     Route: 048
  4. EUTHYROX [Concomitant]
  5. ASAFLOW [Concomitant]
  6. DEANXIT [Concomitant]
  7. XANAX [Concomitant]
  8. COVERSYL [Concomitant]
  9. CALCIUM CARBONATE/COLECALCIFEROL [Concomitant]
  10. ALL OTHER THERAPEUTIC PRODUCTS [Concomitant]

REACTIONS (4)
  - ANAPHYLACTIC SHOCK [None]
  - DYSPNOEA [None]
  - PRURIGO [None]
  - SPEECH DISORDER [None]
